FAERS Safety Report 6324355-6 (Version None)
Quarter: 2009Q3

REPORT INFORMATION
  Report Type: 
  Country: None (occurrence: None)
  Receive Date: 20090824
  Receipt Date: 20090513
  Transmission Date: 20100115
  Serious: No
  Sender: FDA-Public Use
  Company Number: US-ABBOTT-09P-163-0573799-00

PATIENT
  Sex: Male
  Weight: 59.928 kg

DRUGS (12)
  1. NIASPAN [Suspect]
     Indication: BLOOD CHOLESTEROL
     Dates: start: 20090304, end: 20090325
  2. NIASPAN [Suspect]
     Dates: start: 20090325, end: 20090328
  3. NIASPAN [Suspect]
     Dates: start: 20090328
  4. ASPIRIN [Concomitant]
     Indication: DRUG USE FOR UNKNOWN INDICATION
  5. NORVASC [Concomitant]
     Indication: BLOOD PRESSURE
  6. LEVOTHYROXINE SODIUM [Concomitant]
     Indication: THYROID DISORDER
  7. M.V.I. [Concomitant]
     Indication: DRUG USE FOR UNKNOWN INDICATION
  8. TUMS [Concomitant]
     Indication: DRUG USE FOR UNKNOWN INDICATION
  9. VIT D3 [Concomitant]
     Indication: DRUG USE FOR UNKNOWN INDICATION
  10. LUTEIN [Concomitant]
     Indication: EYE DISORDER
  11. GLUCOSAMINE CHONDROITIN TRIPLE STR [Concomitant]
     Indication: DRUG USE FOR UNKNOWN INDICATION
  12. RECLAST [Concomitant]
     Indication: OSTEOPOROSIS
     Dosage: LAST DOSE 16 APR 2009
     Route: 042

REACTIONS (4)
  - BURNING SENSATION [None]
  - DYSSTASIA [None]
  - FLUSHING [None]
  - SENSATION OF HEAVINESS [None]
